FAERS Safety Report 4330292-9 (Version None)
Quarter: 2004Q2

REPORT INFORMATION
  Report Type: 
  Country: None (occurrence: None)
  Receive Date: 20040402
  Receipt Date: 20040324
  Transmission Date: 20050107
  Serious: Yes (Hospitalization)
  Sender: FDA-Public Use
  Company Number: PHBS2004HN04145

PATIENT
  Age: 71 Year
  Sex: Female

DRUGS (3)
  1. ZELMAC [Suspect]
     Dosage: 6 MG, UNK
     Dates: start: 20040316, end: 20040322
  2. TRILEPTAL [Concomitant]
  3. NEURONTIN [Concomitant]

REACTIONS (5)
  - ABDOMINAL PAIN [None]
  - DUODENAL ULCER [None]
  - GASTRIC ULCER [None]
  - GASTRIC ULCER HAEMORRHAGE [None]
  - GASTRITIS EROSIVE [None]
